FAERS Safety Report 8585572-8 (Version None)
Quarter: 2012Q3

REPORT INFORMATION
  Report Type: 
  Country: None (occurrence: None)
  Receive Date: 20120810
  Receipt Date: 20120807
  Transmission Date: 20120928
  Serious: Yes (Life-Threatening, Hospitalization)
  Sender: FDA-Public Use
  Company Number: IT-JNJFOC-20120703433

PATIENT
  Sex: Male
  Weight: 90 kg

DRUGS (8)
  1. LANSOPRAZOLE [Concomitant]
     Indication: GASTRITIS
     Dates: start: 20120327
  2. PALIPERIDONE PALMITATE [Suspect]
     Indication: SCHIZOPHRENIA
     Route: 030
     Dates: start: 20120207
  3. TADALAFIL [Concomitant]
     Indication: ERECTILE DYSFUNCTION
  4. SODIUM ALGINATE [Concomitant]
     Indication: GASTRITIS
     Dates: start: 20120327
  5. CREATINE [Concomitant]
     Indication: MEDICAL DIET
     Dates: start: 20120402
  6. MAGALDRATE [Concomitant]
     Indication: GASTRITIS
     Dates: start: 20120327
  7. HYPERTONIC SOLUTIONS [Concomitant]
     Indication: RHINITIS
     Dates: start: 20120329
  8. RUPATADINE FUMARATE [Concomitant]
     Indication: RHINITIS
     Dates: start: 20120329

REACTIONS (2)
  - SELF INJURIOUS BEHAVIOUR [None]
  - SUICIDAL IDEATION [None]
